FAERS Safety Report 24279721 (Version 1)
Quarter: 2024Q3

REPORT INFORMATION
  Report Type: Spontaneous
  Country: US (occurrence: US)
  Receive Date: 20240904
  Receipt Date: 20240904
  Transmission Date: 20241017
  Serious: Yes (Other)
  Sender: NOVO NORDISK
  Company Number: US-NOVOPROD-1276044

PATIENT
  Sex: Female

DRUGS (1)
  1. WEGOVY [Suspect]
     Active Substance: SEMAGLUTIDE
     Indication: Product used for unknown indication
     Dosage: UNK
     Route: 058

REACTIONS (7)
  - Seizure [Unknown]
  - Pharyngeal swelling [Unknown]
  - Swollen tongue [Unknown]
  - Blood potassium decreased [Unknown]
  - Malaise [Unknown]
  - Hypersensitivity [Not Recovered/Not Resolved]
  - Abdominal pain [Unknown]
